FAERS Safety Report 7718493-0 (Version None)
Quarter: 2011Q3

REPORT INFORMATION
  Report Type: 
  Country: None (occurrence: None)
  Receive Date: 20110830
  Receipt Date: 20110829
  Transmission Date: 20111222
  Serious: No
  Sender: FDA-Public Use
  Company Number: US-PFIZER INC-2011200943

PATIENT
  Age: 2 Year
  Sex: Male
  Weight: 13.605 kg

DRUGS (2)
  1. METHYLPREDNISOLONE [Concomitant]
     Indication: ASTHMA
     Dosage: UNK
  2. ADVIL LIQUI-GELS [Suspect]
     Dosage: 400 MG, UNK
     Route: 048
     Dates: start: 20110829

REACTIONS (2)
  - INCORRECT DOSE ADMINISTERED [None]
  - VOMITING [None]
